FAERS Safety Report 14846275 (Version 2)
Quarter: 2018Q2

REPORT INFORMATION
  Report Type: Spontaneous
  Country: US (occurrence: US)
  Receive Date: 20180504
  Receipt Date: 20180521
  Transmission Date: 20180711
  Serious: Yes (Hospitalization, Disabling)
  Sender: FDA-Public Use
  Company Number: US-TEVA-2018-US-887672

PATIENT
  Age: 16 Year
  Sex: Male

DRUGS (1)
  1. FENTANYL. [Suspect]
     Active Substance: FENTANYL
     Indication: PRODUCT USED FOR UNKNOWN INDICATION
     Dosage: SNORTING A GREY POWDER
     Route: 055

REACTIONS (9)
  - Snoring [Unknown]
  - Somnolence [Unknown]
  - Drug abuse [Unknown]
  - Hyperhidrosis [Unknown]
  - Overdose [Unknown]
  - Unresponsive to stimuli [Recovering/Resolving]
  - Tachycardia [Unknown]
  - Cyanosis [Unknown]
  - Deafness neurosensory [Not Recovered/Not Resolved]
